FAERS Safety Report 19226247 (Version 3)
Quarter: 2021Q2

REPORT INFORMATION
  Report Type: Spontaneous
  Country: US (occurrence: IN)
  Receive Date: 20210506
  Receipt Date: 20210630
  Transmission Date: 20210717
  Serious: Yes (Other)
  Sender: FDA-Public Use
  Company Number: US-PFIZER INC-2021471177

PATIENT
  Age: 54 Year
  Sex: Female

DRUGS (4)
  1. FOLINIC ACID [Suspect]
     Active Substance: LEUCOVORIN
     Indication: COLORECTAL CANCER STAGE III
     Dosage: 400 MG/M2, CYCLIC (COMPLETED TWO CYCLES)
     Dates: start: 2016
  2. OXALIPLATIN. [Suspect]
     Active Substance: OXALIPLATIN
     Indication: COLORECTAL CANCER STAGE III
     Dosage: 85 MG/M2, CYCLIC (EVERY 2 WEEKS), COMPLETED TWO CYCLES
     Dates: start: 2016
  3. FLUOROURACIL. [Suspect]
     Active Substance: FLUOROURACIL
     Indication: COLORECTAL CANCER STAGE III
     Dosage: 400 MG/M2 BOLUS, CYCLIC (COMPLETED TWO CYCLES)
     Route: 040
     Dates: start: 2016
  4. FLUOROURACIL. [Suspect]
     Active Substance: FLUOROURACIL
     Dosage: 2400 MG/M2, CYCLIC (COMPLETED TWO CYCLES)
     Route: 041
     Dates: start: 2016

REACTIONS (2)
  - Cytopenia [Unknown]
  - Mucosal inflammation [Unknown]
